FAERS Safety Report 7402926-3 (Version None)
Quarter: 2011Q2

REPORT INFORMATION
  Report Type: 
  Country: None (occurrence: None)
  Receive Date: 20110408
  Receipt Date: 20110406
  Transmission Date: 20111010
  Serious: No
  Sender: FDA-Public Use
  Company Number: US-TEVA-275076USA

PATIENT
  Sex: Female

DRUGS (1)
  1. COPAXONE [Suspect]
     Indication: MULTIPLE SCLEROSIS
     Route: 058
     Dates: start: 20110228, end: 20110307

REACTIONS (5)
  - HEART RATE [None]
  - EYELID DISORDER [None]
  - DYSPNOEA [None]
  - ERYTHEMA OF EYELID [None]
  - HEPATIC ENZYME INCREASED [None]
